FAERS Safety Report 18552855 (Version 1)
Quarter: 2020Q4

REPORT INFORMATION
  Report Type: Spontaneous
  Country: US (occurrence: US)
  Receive Date: 20201127
  Receipt Date: 20201127
  Transmission Date: 20210114
  Serious: Yes (Disabling, Other)
  Sender: FDA-Public Use
  Company Number: US-TEVA-2020-US-1853457

PATIENT
  Age: 48 Year
  Sex: Female

DRUGS (15)
  1. CARBOPLATIN. [Suspect]
     Active Substance: CARBOPLATIN
     Indication: BREAST CANCER FEMALE
     Dosage: EVERY 3 WEEKS 5 CYCLES
     Dates: start: 20150423, end: 20150716
  2. POTASSIUM CHLORIDE. [Concomitant]
     Active Substance: POTASSIUM CHLORIDE
     Dosage: 20 MEQ, TWICE A DAY
  3. ATIVAN [Concomitant]
     Active Substance: LORAZEPAM
  4. HERCEPTIN [Suspect]
     Active Substance: TRASTUZUMAB
     Indication: BREAST CANCER FEMALE
     Dosage: EVERY 3 WEEKS 5 CYCLES
     Dates: start: 20150423, end: 20150716
  5. PERTUZUMAB. [Suspect]
     Active Substance: PERTUZUMAB
     Indication: BREAST CANCER FEMALE
     Dosage: EVERY 3 WEEKS 5 CYCLES
     Dates: start: 20150423, end: 20150716
  6. DILAUDID [Concomitant]
     Active Substance: HYDROMORPHONE HYDROCHLORIDE
     Dosage: 1 MG
  7. DOCETAXEL ACTAVIS [Suspect]
     Active Substance: DOCETAXEL
     Indication: BREAST CANCER FEMALE
     Dosage: EVERY 3 WEEKS FOR 5 CYCLES
     Route: 065
     Dates: start: 20150423, end: 20150716
  8. DOCETAXEL SAGENT [Suspect]
     Active Substance: DOCETAXEL
     Indication: BREAST CANCER FEMALE
     Dosage: EVERY 3 WEEKS FOR 5 CYCLES
     Route: 065
     Dates: start: 20150423, end: 20150716
  9. FOLIC ACID. [Concomitant]
     Active Substance: FOLIC ACID
     Dosage: DAILY
     Route: 048
  10. TAXOTERE [Suspect]
     Active Substance: DOCETAXEL
     Indication: BREAST CANCER FEMALE
     Dosage: EVERY 3 WEEKS FOR 5 CYCLES
     Route: 065
     Dates: start: 20150423, end: 20150716
  11. TYLENOL EXTRA STRENGTH [Concomitant]
     Active Substance: ACETAMINOPHEN
     Dosage: TWICE A DAY
     Route: 048
  12. RESTORIL 1 [Concomitant]
     Dosage: EVERY DAY BEFORE SLEEP PRN
     Route: 048
  13. DOCETAXEL ACCORD [Suspect]
     Active Substance: DOCETAXEL
     Indication: BREAST CANCER FEMALE
     Dosage: EVERY 3 WEEKS FOR 5 CYCLES
     Route: 065
     Dates: start: 20150423, end: 20150716
  14. ADVIL [Concomitant]
     Active Substance: IBUPROFEN
  15. IMODIUM A-D [Concomitant]
     Active Substance: LOPERAMIDE HYDROCHLORIDE
     Dosage: TWICE A DAY
     Route: 048

REACTIONS (6)
  - Alopecia areata [Not Recovered/Not Resolved]
  - Syncope [Unknown]
  - Hair colour changes [Not Recovered/Not Resolved]
  - Madarosis [Not Recovered/Not Resolved]
  - Hair texture abnormal [Not Recovered/Not Resolved]
  - Alopecia totalis [Recovered/Resolved]

NARRATIVE: CASE EVENT DATE: 2015
